FAERS Safety Report 10933791 (Version 1)
Quarter: 2015Q1

REPORT INFORMATION
  Report Type: Other
  Country: GB (occurrence: GB)
  Receive Date: 20150320
  Receipt Date: 20150320
  Transmission Date: 20150721
  Serious: Yes (Other)
  Sender: FDA-Public Use
  Company Number: GB-MYLANLABS-2015M1007692

PATIENT

DRUGS (3)
  1. SILDENAFIL. [Concomitant]
     Active Substance: SILDENAFIL
     Dosage: 1 DF, UNK (TAKE ONE TABLET AN HOUR BEFORE SEXUAL INTERCOURSE)
     Dates: start: 20150222
  2. SIMVASTATIN. [Suspect]
     Active Substance: SIMVASTATIN
     Dosage: 1 DF, QD (TAKE ONE AT NIGHT)
     Dates: start: 20141117
  3. FINASTERIDE. [Concomitant]
     Active Substance: FINASTERIDE
     Dosage: 1 DF, QD
     Dates: start: 20140521

REACTIONS (2)
  - Pain in extremity [Unknown]
  - Blood creatine phosphokinase increased [Unknown]

NARRATIVE: CASE EVENT DATE: 20150227
